FAERS Safety Report 19024290 (Version 1)
Quarter: 2021Q1

REPORT INFORMATION
  Report Type: Spontaneous
  Country: US (occurrence: US)
  Receive Date: 20210317
  Receipt Date: 20210317
  Transmission Date: 20210420
  Serious: Yes (Other)
  Sender: FDA-Public Use
  Company Number: US-ALXN-A202103398

PATIENT
  Age: 47 Year
  Sex: Male

DRUGS (2)
  1. ULTOMIRIS [Suspect]
     Active Substance: RAVULIZUMAB-CWVZ
     Indication: THROMBOTIC MICROANGIOPATHY
  2. ULTOMIRIS [Suspect]
     Active Substance: RAVULIZUMAB-CWVZ
     Indication: OFF LABEL USE
     Dosage: 2700 MG, LOADING DOSE
     Route: 065

REACTIONS (6)
  - Blood culture positive [Unknown]
  - Reticulocyte count increased [Unknown]
  - Off label use [Unknown]
  - Blood count abnormal [Unknown]
  - Haemolysis [Unknown]
  - Pyrexia [Unknown]
